FAERS Safety Report 12344809 (Version 2)
Quarter: 2016Q2

REPORT INFORMATION
  Report Type: Report from Study
  Country: CA (occurrence: CA)
  Receive Date: 20160507
  Receipt Date: 20160606
  Transmission Date: 20160815
  Serious: Yes (Hospitalization)
  Sender: FDA-Public Use
  Company Number: CA-BIOGEN-2016BI00232382

PATIENT
  Age: 69 Year
  Sex: Female

DRUGS (2)
  1. AVONEX [Suspect]
     Active Substance: INTERFERON BETA-1A
     Route: 065
     Dates: start: 20160314, end: 20160421
  2. AVONEX [Suspect]
     Active Substance: INTERFERON BETA-1A
     Indication: MULTIPLE SCLEROSIS
     Route: 030
     Dates: start: 20121114, end: 20141018

REACTIONS (10)
  - Escherichia bacteraemia [Recovered/Resolved]
  - Contusion [Unknown]
  - Arthralgia [Unknown]
  - Muscular weakness [Recovered/Resolved]
  - Decreased immune responsiveness [Unknown]
  - Needle fatigue [Unknown]
  - Pain in extremity [Unknown]
  - Fall [Recovered/Resolved]
  - Hypoaesthesia [Unknown]
  - Abasia [Unknown]

NARRATIVE: CASE EVENT DATE: 20141018
